FAERS Safety Report 17944895 (Version 1)
Quarter: 2020Q2

REPORT INFORMATION
  Report Type: Spontaneous
  Country: US (occurrence: US)
  Receive Date: 20200625
  Receipt Date: 20200625
  Transmission Date: 20200714
  Serious: Yes (Hospitalization, Other)
  Sender: FDA-Public Use
  Company Number: US-SAREPTA THERAPEUTICS INC.-SRP2020-000796

PATIENT
  Age: 13 Year
  Sex: Male

DRUGS (1)
  1. VYONDYS 53 [Suspect]
     Active Substance: GOLODIRSEN
     Indication: DUCHENNE MUSCULAR DYSTROPHY
     Dosage: 1500 MG, WEEKLY
     Route: 042

REACTIONS (1)
  - Nephrolithiasis [Unknown]

NARRATIVE: CASE EVENT DATE: 20200618
